FAERS Safety Report 6998860-3 (Version None)
Quarter: 2010Q3

REPORT INFORMATION
  Report Type: 
  Country: None (occurrence: None)
  Receive Date: 20100920
  Receipt Date: 20090923
  Transmission Date: 20110219
  Serious: Yes (Other)
  Sender: FDA-Public Use
  Company Number: US-ASTRAZENECA-2009SE14900

PATIENT
  Age: 34 Year
  Sex: Female

DRUGS (7)
  1. SEROQUEL XR [Suspect]
     Route: 048
     Dates: end: 20090917
  2. ABILIFY [Concomitant]
  3. LEXAPRO [Concomitant]
  4. CLONIPINE [Concomitant]
  5. NORCO [Concomitant]
  6. IMMITREX [Concomitant]
  7. ELAVIL [Concomitant]

REACTIONS (3)
  - BLOOD CHOLESTEROL INCREASED [None]
  - BLOOD TRIGLYCERIDES INCREASED [None]
  - WEIGHT INCREASED [None]
